FAERS Safety Report 20685193 (Version 6)
Quarter: 2022Q4

REPORT INFORMATION
  Report Type: Spontaneous
  Country: US (occurrence: US)
  Receive Date: 20220407
  Receipt Date: 20221212
  Transmission Date: 20230113
  Serious: Yes (Disabling, Other)
  Sender: FDA-Public Use
  Company Number: US-PFIZER INC-202200468860

PATIENT
  Age: 71 Year
  Sex: Female

DRUGS (1)
  1. XELJANZ XR [Suspect]
     Active Substance: TOFACITINIB CITRATE
     Dosage: 11 MG, 1X/DAY, [DIRECTIONS 1 TABLET ORALLY ONCE A DAY 90 DAYS]
     Route: 048

REACTIONS (5)
  - Knee arthroplasty [Unknown]
  - Pain [Unknown]
  - Loss of personal independence in daily activities [Unknown]
  - Liver disorder [Not Recovered/Not Resolved]
  - Impaired healing [Recovering/Resolving]

NARRATIVE: CASE EVENT DATE: 20220929
